FAERS Safety Report 23049712 (Version 1)
Quarter: 2023Q4

REPORT INFORMATION
  Report Type: Spontaneous
  Country: US (occurrence: US)
  Receive Date: 20231010
  Receipt Date: 20231010
  Transmission Date: 20240110
  Serious: No
  Sender: FDA-Public Use
  Company Number: US-ABBVIE-5439170

PATIENT
  Sex: Female

DRUGS (1)
  1. LILETTA [Suspect]
     Active Substance: LEVONORGESTREL
     Indication: Product used for unknown indication
     Dosage: FORM STRENGTH: 52 MILLIGRAM
     Route: 015
     Dates: start: 20230731, end: 20231003

REACTIONS (2)
  - Device expulsion [Unknown]
  - Adverse reaction [Unknown]

NARRATIVE: CASE EVENT DATE: 20231003
